FAERS Safety Report 26195415 (Version 1)
Quarter: 2025Q4

REPORT INFORMATION
  Report Type: Report from Study
  Country: US (occurrence: US)
  Receive Date: 20251224
  Receipt Date: 20251224
  Transmission Date: 20260118
  Serious: Yes (Other)
  Sender: ALEXION PHARMACEUTICALS
  Company Number: US-AstraZeneca-CH-01016646A

PATIENT
  Sex: Female

DRUGS (1)
  1. STRENSIQ [Suspect]
     Active Substance: ASFOTASE ALFA
     Indication: Hypophosphataemia
     Dosage: UNK
     Route: 065

REACTIONS (5)
  - Paralysis [Unknown]
  - Injection site pain [Unknown]
  - Fatigue [Unknown]
  - Electric shock sensation [Unknown]
  - Fear of injection [Unknown]
